FAERS Safety Report 18168052 (Version 3)
Quarter: 2020Q3

REPORT INFORMATION
  Report Type: Spontaneous
  Country: US (occurrence: US)
  Receive Date: 20200819
  Receipt Date: 20200924
  Transmission Date: 20201103
  Serious: No
  Sender: FDA-Public Use
  Company Number: US-HTU-2020US020875

PATIENT
  Age: 66 Year
  Sex: Female

DRUGS (3)
  1. VALCHLOR [Suspect]
     Active Substance: MECHLORETHAMINE
     Indication: CUTANEOUS T-CELL LYMPHOMA
     Dosage: TO THE AREAS OF MF ON HER BACK, SINGLE
     Route: 061
     Dates: start: 20200611, end: 20200708
  2. VALCHLOR [Suspect]
     Active Substance: MECHLORETHAMINE
     Dosage: TO THE AREAS OF MF ON HER BACK, QOD
     Route: 061
     Dates: start: 20200709, end: 20200723
  3. VALCHLOR [Suspect]
     Active Substance: MECHLORETHAMINE
     Dosage: UNK,1?2/WEEK
     Route: 061
     Dates: start: 2020

REACTIONS (6)
  - Condition aggravated [Not Recovered/Not Resolved]
  - Application site discolouration [Unknown]
  - Sleep disorder due to a general medical condition [Recovering/Resolving]
  - Application site pruritus [Not Recovered/Not Resolved]
  - Application site erythema [Not Recovered/Not Resolved]
  - Application site exfoliation [Not Recovered/Not Resolved]

NARRATIVE: CASE EVENT DATE: 2020
